FAERS Safety Report 17657955 (Version 4)
Quarter: 2020Q3

REPORT INFORMATION
  Report Type: Report from Study
  Country: US (occurrence: US)
  Receive Date: 20200411
  Receipt Date: 20200708
  Transmission Date: 20201102
  Serious: No
  Sender: FDA-Public Use
  Company Number: NVSC2020US097381

PATIENT
  Sex: Male

DRUGS (2)
  1. COSENTYX [Suspect]
     Active Substance: SECUKINUMAB
     Dosage: 300 MG, UNKNOWN
     Route: 058
  2. COSENTYX [Suspect]
     Active Substance: SECUKINUMAB
     Indication: PSORIASIS
     Dosage: 300 MG, Q2W
     Route: 058

REACTIONS (3)
  - Product dose omission issue [Not Recovered/Not Resolved]
  - Rash macular [Not Recovered/Not Resolved]
  - Psoriasis [Unknown]
